FAERS Safety Report 14303284 (Version 1)
Quarter: 2017Q4

REPORT INFORMATION
  Report Type: Spontaneous
  Country: PL (occurrence: PL)
  Receive Date: 20171219
  Receipt Date: 20171219
  Transmission Date: 20180321
  Serious: Yes (Hospitalization)
  Sender: FDA-Public Use
  Company Number: PL-OTSUKA-17023110

PATIENT
  Age: 37 Year
  Sex: Male
  Weight: 130 kg

DRUGS (2)
  1. ABILIFY [Suspect]
     Active Substance: ARIPIPRAZOLE
     Indication: HALLUCINATION
     Dosage: ABILIFY 7.5MG ALSO TAKEN, 1ST DOSE 13-14SEP12 REINTRODUED ON 4OCT12  1 QUARTER OF ABILIFY 15MG TAB
     Route: 048
     Dates: start: 20120913
  2. ABILIFY [Suspect]
     Active Substance: ARIPIPRAZOLE
     Indication: DELUSION

REACTIONS (2)
  - Vertigo [Not Recovered/Not Resolved]
  - Wrong technique in product usage process [Unknown]

NARRATIVE: CASE EVENT DATE: 201209
